FAERS Safety Report 20347351 (Version 1)
Quarter: 2022Q1

REPORT INFORMATION
  Report Type: Spontaneous
  Country: US (occurrence: None)
  Receive Date: 20220118
  Receipt Date: 20220118
  Transmission Date: 20220423
  Serious: Yes (Hospitalization)
  Sender: FDA-Public Use
  Company Number: None

PATIENT
  Age: 72 Year
  Sex: Male

DRUGS (1)
  1. TEPROTUMUMAB-TRBW [Suspect]
     Active Substance: TEPROTUMUMAB-TRBW
     Indication: Endocrine ophthalmopathy
     Dosage: FREQUENCY : ONCE;?
     Dates: start: 20210531, end: 20210620

REACTIONS (4)
  - Diabetic ketoacidosis [None]
  - Weight decreased [None]
  - Hyperglycaemia [None]
  - Diarrhoea [None]

NARRATIVE: CASE EVENT DATE: 20210106
